FAERS Safety Report 7738432-6 (Version None)
Quarter: 2011Q3

REPORT INFORMATION
  Report Type: 
  Country: None (occurrence: None)
  Receive Date: 20110908
  Receipt Date: 20110823
  Transmission Date: 20111222
  Serious: Yes (Other)
  Sender: FDA-Public Use
  Company Number: BE-GENENTECH-323694

PATIENT
  Sex: Female

DRUGS (6)
  1. SERETIDE [Concomitant]
     Indication: PRODUCT USED FOR UNKNOWN INDICATION
     Dosage: UNK A?G, UNK
  2. CORTICOSTEROIDS (UNK INGREDIENTS) [Concomitant]
     Indication: PRODUCT USED FOR UNKNOWN INDICATION
  3. XOLAIR [Suspect]
     Indication: ASTHMA
     Dosage: 300 MG, Q4W
     Dates: start: 20110527
  4. APROVEL [Concomitant]
     Indication: PRODUCT USED FOR UNKNOWN INDICATION
  5. NASONEX [Concomitant]
     Indication: PRODUCT USED FOR UNKNOWN INDICATION
  6. VENTOLIN HFA [Concomitant]
     Indication: PRODUCT USED FOR UNKNOWN INDICATION

REACTIONS (3)
  - INFLUENZA LIKE ILLNESS [None]
  - ANTINUCLEAR ANTIBODY POSITIVE [None]
  - ARTHRALGIA [None]
